APPROVED DRUG PRODUCT: ATOMOXETINE HYDROCHLORIDE
Active Ingredient: ATOMOXETINE HYDROCHLORIDE
Strength: EQ 10MG BASE
Dosage Form/Route: CAPSULE;ORAL
Application: A079017 | Product #007 | TE Code: AB
Applicant: ZYDUS PHARMACEUTICALS USA INC
Approved: Apr 5, 2023 | RLD: No | RS: No | Type: RX